FAERS Safety Report 21616326 (Version 9)
Quarter: 2023Q2

REPORT INFORMATION
  Report Type: Report from Study
  Country: US (occurrence: US)
  Receive Date: 20221118
  Receipt Date: 20230619
  Transmission Date: 20230721
  Serious: Yes (Other)
  Sender: FDA-Public Use
  Company Number: US-ABBVIE-4206297

PATIENT
  Sex: Female
  Weight: 71.213 kg

DRUGS (8)
  1. RINVOQ [Suspect]
     Active Substance: UPADACITINIB
     Indication: Dermatitis atopic
     Dosage: FORM STRENGTH: 15 MG ER
     Route: 048
  2. RINVOQ [Suspect]
     Active Substance: UPADACITINIB
     Indication: Dermatitis atopic
     Dosage: FORM STRENGTH: 15 MG ER
     Route: 048
     Dates: start: 20211101
  3. RINVOQ [Suspect]
     Active Substance: UPADACITINIB
     Indication: Dermatitis atopic
     Dosage: DISCONTINUED IN 2021.
     Route: 048
     Dates: start: 20211031
  4. SYNTHROID [Concomitant]
     Active Substance: LEVOTHYROXINE SODIUM
     Indication: Product used for unknown indication
     Dosage: 112, DAILY, FREQUENCY TEXT: 6XWEEK
     Route: 048
  5. OPZELURA [Concomitant]
     Active Substance: RUXOLITINIB PHOSPHATE
     Indication: Product used for unknown indication
     Dosage: LOTION, FORM STRENGTH: 1.5 PERCENT, FREQUENCY TEXT: AS NEEDED
  6. ESTRADIOL [Concomitant]
     Active Substance: ESTRADIOL
     Indication: Product used for unknown indication
     Dosage: FORM STRENGTH: 0.01 PERCENT, FREQUENCY TEXT: 3XWEEK
  7. TRIAMCINOLONE [Concomitant]
     Active Substance: TRIAMCINOLONE
     Indication: Product used for unknown indication
     Dosage: FORM STRENGTH: 1 PERCENT, FREQUENCY TEXT: AS NEEDED
  8. AMMONIUM LACTATE [Concomitant]
     Active Substance: AMMONIUM LACTATE
     Indication: Product used for unknown indication
     Dosage: LOTION, FORM STRENGTH: 12 PERCENT, FREQUENCY TEXT: DAILY

REACTIONS (11)
  - Skin cancer [Unknown]
  - Rash erythematous [Unknown]
  - Dermatitis atopic [Unknown]
  - Skin swelling [Unknown]
  - Skin disorder [Unknown]
  - Ear discomfort [Unknown]
  - Dry skin [Unknown]
  - Allergy test positive [Unknown]
  - Skin burning sensation [Unknown]
  - Micrographic skin surgery [Unknown]
  - Adverse reaction [Unknown]

NARRATIVE: CASE EVENT DATE: 20220101
